FAERS Safety Report 24151748 (Version 1)
Quarter: 2024Q3

REPORT INFORMATION
  Report Type: Spontaneous
  Country: IT (occurrence: IT)
  Receive Date: 20240730
  Receipt Date: 20240730
  Transmission Date: 20241016
  Serious: Yes (Other)
  Sender: TEVA
  Company Number: None

PATIENT
  Age: 75 Year
  Sex: Male

DRUGS (3)
  1. EPIRUBICIN [Suspect]
     Active Substance: EPIRUBICIN
     Indication: Soft tissue sarcoma
     Dosage: 100 MG DAY 1 AND 2 OF A 21 DAY CYCLE, EPIRUBICIN HYDROCHLORIDE
     Route: 042
     Dates: start: 20240610, end: 20240611
  2. IFOSFAMIDE [Suspect]
     Active Substance: IFOSFAMIDE
     Indication: Soft tissue sarcoma
     Dosage: 4800 MG IN CONTINUOUS INFUSION FOR 7 DAYS
     Route: 042
     Dates: start: 20240610, end: 20240616
  3. MESNA [Suspect]
     Active Substance: MESNA
     Indication: Prophylaxis
     Dosage: 4800MG IN CONTINUOUS INFUSION FOR 7 DAYS
     Route: 042
     Dates: start: 20240610, end: 20240616

REACTIONS (1)
  - Neutropenia [Not Recovered/Not Resolved]

NARRATIVE: CASE EVENT DATE: 20240701
